FAERS Safety Report 15603857 (Version 1)
Quarter: 2018Q4

REPORT INFORMATION
  Report Type: Report from Study
  Country: None (occurrence: CZ)
  Receive Date: 20181109
  Receipt Date: 20181109
  Transmission Date: 20190205
  Serious: Yes (Hospitalization, Other)
  Sender: FDA-Public Use
  Company Number: CZ-ABBVIE-18P-217-2546811-00

PATIENT
  Age: 64 Year
  Sex: Female

DRUGS (10)
  1. CARBOPLATIN. [Suspect]
     Active Substance: CARBOPLATIN
     Indication: BREAST CANCER
     Dosage: AUC 6 DAY 1 OF FOUR 21-DAY CYCLES
     Route: 042
     Dates: start: 20150709, end: 20151007
  2. PACLITAXEL. [Suspect]
     Active Substance: PACLITAXEL
     Indication: BREAST CANCER
     Dosage: DAY 1 OF 12 WEEKLY CYCLES
     Route: 042
     Dates: start: 20150707, end: 20151013
  3. TENAXUM [Concomitant]
     Active Substance: RILMENIDINE
     Indication: HYPERTENSION
     Route: 048
     Dates: start: 2010
  4. HELICID [Concomitant]
     Active Substance: OMEPRAZOLE
     Indication: ABDOMINAL PAIN UPPER
  5. HELICID [Concomitant]
     Active Substance: OMEPRAZOLE
     Indication: PROPHYLAXIS AGAINST GASTROINTESTINAL ULCER
     Route: 048
     Dates: start: 201507
  6. ABT-888 [Suspect]
     Active Substance: VELIPARIB
     Indication: BREAST CANCER
     Route: 048
     Dates: start: 20150709, end: 20151021
  7. CYCLOPHOSPHAMIDE. [Suspect]
     Active Substance: CYCLOPHOSPHAMIDE
     Indication: BREAST CANCER
     Dosage: DAY 1 OF FOUR 14-DAY CYCLES
     Route: 042
     Dates: start: 20151029, end: 20151217
  8. DOXORUBICIN [Suspect]
     Active Substance: DOXORUBICIN
     Indication: BREAST CANCER
     Dosage: DAY 1 OF FOUR 14-DAY CYCLES
     Route: 042
     Dates: start: 20151029, end: 20151215
  9. TRITACE [Concomitant]
     Active Substance: RAMIPRIL
     Indication: HYPERTENSION
     Route: 048
     Dates: start: 2015
  10. ZOLPINOX [Concomitant]
     Indication: INSOMNIA
     Route: 048
     Dates: start: 201507

REACTIONS (1)
  - Acute myeloid leukaemia [Not Recovered/Not Resolved]

NARRATIVE: CASE EVENT DATE: 20181101
